FAERS Safety Report 5266996-3 (Version None)
Quarter: 2007Q1

REPORT INFORMATION
  Report Type: 
  Country: None (occurrence: None)
  Receive Date: 20070313
  Receipt Date: 20070302
  Transmission Date: 20070707
  Serious: Yes (Other)
  Sender: FDA-Public Use
  Company Number: 2006-04-0971

PATIENT
  Age: 31 Year
  Sex: Female

DRUGS (4)
  1. PEG-INTRON [Suspect]
     Indication: HEPATITIS C
     Dosage: 80 MCG; QW; SC
     Route: 058
     Dates: start: 20060208, end: 20060222
  2. REBETOL [Suspect]
     Indication: HEPATITIS C
     Dosage: 800 MG; QD; PO
     Route: 048
     Dates: start: 20060208, end: 20060222
  3. PRENATAL VITAMINS [Concomitant]
  4. METHADONE HCL [Concomitant]

REACTIONS (6)
  - DRUG EXPOSURE DURING PREGNANCY [None]
  - HEADACHE [None]
  - HYPEREMESIS GRAVIDARUM [None]
  - PLACENTA PRAEVIA [None]
  - PREGNANCY [None]
  - PREMATURE LABOUR [None]
